FAERS Safety Report 10245206 (Version 4)
Quarter: 2015Q2

REPORT INFORMATION
  Report Type: Spontaneous
  Country: US (occurrence: US)
  Receive Date: 20140618
  Receipt Date: 20150422
  Transmission Date: 20150821
  Serious: Yes (Disabling)
  Sender: FDA-Public Use
  Company Number: US-MERCK-1406USA007268

PATIENT
  Sex: Male
  Weight: 73.24 kg

DRUGS (1)
  1. PROSCAR [Suspect]
     Active Substance: FINASTERIDE
     Indication: ANDROGENETIC ALOPECIA
     Dosage: 1-1.25 MG, QD
     Route: 048
     Dates: start: 20010612, end: 2007

REACTIONS (26)
  - Amnesia [Not Recovered/Not Resolved]
  - Sexual dysfunction [Not Recovered/Not Resolved]
  - Foot fracture [Unknown]
  - Epididymal cyst [Unknown]
  - Testicular pain [Unknown]
  - Sperm concentration decreased [Not Recovered/Not Resolved]
  - Loss of libido [Not Recovered/Not Resolved]
  - Testicular disorder [Unknown]
  - Chronic fatigue syndrome [Not Recovered/Not Resolved]
  - Feeling abnormal [Unknown]
  - Hypogonadism [Unknown]
  - Organic erectile dysfunction [Not Recovered/Not Resolved]
  - Depression [Not Recovered/Not Resolved]
  - Back pain [Unknown]
  - Drug dependence [Unknown]
  - Anxiety [Not Recovered/Not Resolved]
  - Ejaculation disorder [Not Recovered/Not Resolved]
  - Blood testosterone decreased [Unknown]
  - Drug administration error [Unknown]
  - Pain in extremity [Unknown]
  - Infertility male [Unknown]
  - Wrong technique in drug usage process [Unknown]
  - Hypertension [Unknown]
  - Penile size reduced [Not Recovered/Not Resolved]
  - Drug ineffective [Unknown]
  - Panic disorder without agoraphobia [Unknown]

NARRATIVE: CASE EVENT DATE: 20010612
